FAERS Safety Report 25632651 (Version 1)
Quarter: 2025Q3

REPORT INFORMATION
  Report Type: Spontaneous
  Country: US (occurrence: US)
  Receive Date: 20250801
  Receipt Date: 20250801
  Transmission Date: 20251021
  Serious: Yes (Other)
  Sender: GRIFOLS
  Company Number: US-IGSA-BIG0031542

PATIENT
  Age: 64 Year
  Sex: Female

DRUGS (3)
  1. GAMUNEX-C [Suspect]
     Active Substance: HUMAN IMMUNOGLOBULIN G
     Indication: Polyneuropathy
     Dosage: 100 GRAM, B.I.WK.
     Route: 042
     Dates: start: 20100714
  2. LOSARTAN [Concomitant]
     Active Substance: LOSARTAN
     Indication: Premedication
  3. CLONIDINE HCL PCH [Concomitant]
     Indication: Premedication

REACTIONS (2)
  - Blood pressure increased [Unknown]
  - Blood pressure decreased [Recovered/Resolved]

NARRATIVE: CASE EVENT DATE: 20241106
